FAERS Safety Report 8384195-3 (Version None)
Quarter: 2012Q2

REPORT INFORMATION
  Report Type: 
  Country: None (occurrence: None)
  Receive Date: 20120524
  Receipt Date: 20120516
  Transmission Date: 20120825
  Serious: Yes (Hospitalization)
  Sender: FDA-Public Use
  Company Number: JP-AMGEN-JPNCT2011069035

PATIENT
  Age: 74 Year
  Sex: Male
  Weight: 45 kg

DRUGS (19)
  1. FLUOROURACIL [Concomitant]
     Dosage: 3450 MG, UNK
     Route: 041
     Dates: start: 20110414
  2. FLUOROURACIL [Concomitant]
     Dosage: 475 MG, UNK
     Route: 040
     Dates: end: 20111122
  3. FLUOROURACIL [Concomitant]
     Dosage: 2800 MG, UNK
     Route: 041
     Dates: end: 20111122
  4. LASIX [Concomitant]
     Route: 065
  5. TSUMURA CHOREITO [Concomitant]
     Route: 048
  6. PURSENNID [Concomitant]
     Route: 048
  7. OXALIPLATIN [Concomitant]
     Indication: COLORECTAL CANCER
     Dosage: 98 MG, Q2WK
     Route: 041
     Dates: start: 20110414, end: 20110811
  8. ALDACTONE [Concomitant]
     Route: 048
  9. AMLODIPINE [Concomitant]
     Route: 048
  10. EMEND [Concomitant]
     Route: 048
  11. PANITUMUMAB [Suspect]
     Indication: COLORECTAL CANCER
     Dosage: 290 MG, Q2WK
     Route: 041
     Dates: start: 20110428, end: 20111122
  12. ISOVORIN [Concomitant]
     Indication: COLORECTAL CANCER
     Dosage: 288 MG, Q2WK
     Route: 041
     Dates: start: 20110414, end: 20111122
  13. PREDNISOLONE [Concomitant]
     Dosage: UNK UNK, QD
     Route: 065
  14. MAGMITT [Concomitant]
     Route: 048
  15. DECADRON [Concomitant]
     Route: 065
  16. FLUOROURACIL [Concomitant]
     Indication: COLORECTAL CANCER
     Dosage: 575 MG, Q2WK
     Route: 040
     Dates: start: 20110414
  17. LOXONIN [Concomitant]
     Route: 065
  18. MINOCYCLINE HYDROCHLORIDE [Concomitant]
     Route: 065
  19. MIKELAN LA [Concomitant]
     Route: 065

REACTIONS (2)
  - INTERSTITIAL LUNG DISEASE [None]
  - NEUROPATHY PERIPHERAL [None]
